FAERS Safety Report 25233525 (Version 5)
Quarter: 2025Q3

REPORT INFORMATION
  Report Type: Report from Study
  Country: US (occurrence: US)
  Receive Date: 20250424
  Receipt Date: 20250820
  Transmission Date: 20251020
  Serious: Yes (Other)
  Sender: SUNOVION
  Company Number: US-SUMITOMO PHARMA SWITZERLAND GMBH-2025SPA003916

PATIENT
  Age: 73 Year
  Sex: Male

DRUGS (1)
  1. ORGOVYX [Suspect]
     Active Substance: RELUGOLIX
     Indication: Prostate cancer
     Dosage: 120 MG, QD...STARTED WITH BIOLOGICS
     Route: 048
     Dates: start: 20250401

REACTIONS (6)
  - Urinary retention [Unknown]
  - Therapeutic procedure [Unknown]
  - Pollakiuria [Unknown]
  - Emotional distress [Unknown]
  - Hot flush [Unknown]
  - Incorrect dose administered [Recovered/Resolved]
